FAERS Safety Report 9503424 (Version 1)
Quarter: 2013Q3

REPORT INFORMATION
  Report Type: Spontaneous
  Country: US (occurrence: US)
  Receive Date: 20130906
  Receipt Date: 20130906
  Transmission Date: 20140515
  Serious: Yes (Hospitalization)
  Sender: FDA-Public Use
  Company Number: US-BAYER-2013-105567

PATIENT
  Age: 30 Year
  Sex: Female

DRUGS (1)
  1. MIRENA [Suspect]
     Dosage: 20 MCG/24HR, CONT
     Route: 015
     Dates: start: 20080228, end: 20090805

REACTIONS (12)
  - Uterine perforation [None]
  - Abdominal pain [None]
  - Diarrhoea haemorrhagic [None]
  - Haematemesis [None]
  - Ascites [None]
  - Pelvic fluid collection [None]
  - Haematoma [None]
  - Injury [None]
  - Medical device pain [None]
  - Infection [None]
  - Large intestine perforation [None]
  - Ovarian cyst [None]
